FAERS Safety Report 4505298-7 (Version None)
Quarter: 2004Q4

REPORT INFORMATION
  Report Type: 
  Country: None (occurrence: None)
  Receive Date: 20041118
  Receipt Date: 20041118
  Transmission Date: 20050328
  Serious: Yes (Hospitalization)
  Sender: FDA-Public Use
  Company Number: None

PATIENT
  Sex: Female

DRUGS (11)
  1. TIAGABINE [Suspect]
     Indication: MENTAL STATUS CHANGES
  2. TIAGABINE [Suspect]
     Indication: OVERDOSE
  3. TIAGABINE [Suspect]
     Indication: SEROTONIN SYNDROME
  4. LEXAPRO [Concomitant]
  5. GABITRIL [Concomitant]
  6. SEROQUEL [Concomitant]
  7. EFFEXOR [Concomitant]
  8. GLUCOTROL [Concomitant]
  9. HEPARIN [Concomitant]
  10. INSULIN [Concomitant]
  11. CIPROFLOXACIN [Concomitant]

REACTIONS (2)
  - BLOOD GLUCOSE INCREASED [None]
  - DELIRIUM [None]
